FAERS Safety Report 8709515 (Version 2)
Quarter: 2012Q4

REPORT INFORMATION
  Report Type: 
  Country: CA (occurrence: US)
  Receive Date: 20120806
  Receipt Date: 20121031
  Transmission Date: 20130627
  Serious: No
  Sender: FDA-Public Use
  Company Number: CA-009507513-2012SP022455

PATIENT

DRUGS (1)
  1. COPPERTONE KIDS SPF 50 SPRAY [Suspect]
     Indication: PROPHYLAXIS AGAINST SOLAR RADIATION
     Dosage: UNK UNK, Unknown
     Route: 061

REACTIONS (8)
  - Heat stroke [Unknown]
  - Sunburn [Unknown]
  - Blister [Unknown]
  - Insomnia [Unknown]
  - Discomfort [Unknown]
  - Pain [Unknown]
  - Burns second degree [None]
  - Burns third degree [None]
